FAERS Safety Report 9366253 (Version 1)
Quarter: 2013Q2

REPORT INFORMATION
  Report Type: Spontaneous
  Country: NL (occurrence: NL)
  Receive Date: 20130625
  Receipt Date: 20130625
  Transmission Date: 20140414
  Serious: Yes (Other)
  Sender: FDA-Public Use
  Company Number: NL-PFIZER INC-2013184464

PATIENT
  Age: 63 Year
  Sex: Female
  Weight: 110 kg

DRUGS (4)
  1. XALATAN [Suspect]
     Indication: GLAUCOMA
     Dosage: 1 GTT IN EACH EYE, 1X/DAY
     Dates: start: 19930101
  2. DICLOFENAC [Concomitant]
     Indication: ARTHRALGIA
     Dosage: UNK, AS NEEDED
  3. IBUPROFEN [Concomitant]
     Indication: ARTHRALGIA
     Dosage: UNK, AS NEEDED
  4. FUSIDIC ACID [Concomitant]
     Dosage: UNK, 1X/DAY

REACTIONS (3)
  - Depressed level of consciousness [Unknown]
  - Arrhythmia [Not Recovered/Not Resolved]
  - Hyperhidrosis [Not Recovered/Not Resolved]
